FAERS Safety Report 6612375-3 (Version None)
Quarter: 2010Q1

REPORT INFORMATION
  Report Type: 
  Country: None (occurrence: None)
  Receive Date: 20100303
  Receipt Date: 20091204
  Transmission Date: 20100710
  Serious: No
  Sender: FDA-Public Use
  Company Number: US-BAYER-201012262BCC

PATIENT
  Age: 70 Year
  Sex: Male

DRUGS (5)
  1. ALEVE (CAPLET) [Suspect]
     Indication: DRUG USE FOR UNKNOWN INDICATION
     Dosage: TOTAL DAILY DOSE: 660 MG  UNIT DOSE: 220 MG
     Route: 048
     Dates: start: 20091204
  2. DIOVAN [Concomitant]
     Route: 065
  3. VYTORIN [Concomitant]
     Route: 065
  4. TESTOSTERONE / PROGESTERONE [Concomitant]
     Route: 065
  5. HGH [Concomitant]
     Route: 065

REACTIONS (1)
  - NO ADVERSE EVENT [None]
